FAERS Safety Report 8923371 (Version 1)
Quarter: 2012Q4

REPORT INFORMATION
  Report Type: 
  Country: MX (occurrence: MX)
  Receive Date: 20121123
  Receipt Date: 20121123
  Transmission Date: 20130627
  Serious: Yes (Other)
  Sender: FDA-Public Use
  Company Number: MX-JNJFOC-20121109115

PATIENT
  Age: 20 Month
  Sex: Female
  Weight: 12 kg

DRUGS (1)
  1. TYLENOL [Suspect]
     Indication: PRODUCT USED FOR UNKNOWN INDICATION
     Route: 048
     Dates: start: 20121105, end: 20121112

REACTIONS (2)
  - Diarrhoea [Recovered/Resolved]
  - Regurgitation [Unknown]
